FAERS Safety Report 21827437 (Version 3)
Quarter: 2023Q1

REPORT INFORMATION
  Report Type: Spontaneous
  Country: US (occurrence: US)
  Receive Date: 20230106
  Receipt Date: 20230314
  Transmission Date: 20230418
  Serious: Yes (Other)
  Sender: FDA-Public Use
  Company Number: US-COOPERSURGICAL, INC.-US-2022CPS001138

PATIENT
  Age: 31 Year
  Sex: Female
  Weight: 71.202 kg

DRUGS (1)
  1. PARAGARD T 380A [Suspect]
     Active Substance: COPPER
     Indication: Contraception
     Dosage: UNK
     Route: 015
     Dates: start: 20190104, end: 20220209

REACTIONS (11)
  - Granulomatous liver disease [Unknown]
  - Hepatic calcification [Unknown]
  - Ureteritis [Recovered/Resolved]
  - Hydronephrosis [Recovered/Resolved]
  - Nephrolithiasis [Recovered/Resolved]
  - Embedded device [Recovered/Resolved]
  - Flank pain [Recovered/Resolved]
  - Weight decreased [Unknown]
  - Abdominal pain upper [Recovered/Resolved]
  - Device dislocation [Recovered/Resolved]
  - Device expulsion [Recovered/Resolved]

NARRATIVE: CASE EVENT DATE: 20190104
